FAERS Safety Report 4558500-X (Version None)
Quarter: 2005Q1

REPORT INFORMATION
  Report Type: 
  Country: None (occurrence: None)
  Receive Date: 20050121
  Receipt Date: 20041103
  Transmission Date: 20050727
  Serious: Yes (Life-Threatening, Hospitalization, Disabling, Other)
  Sender: FDA-Public Use
  Company Number: NL-MERCK-0411NLD00003

PATIENT
  Age: 72 Year
  Sex: Male

DRUGS (5)
  1. VIOXX [Suspect]
     Route: 048
     Dates: start: 20030116, end: 20030714
  2. VIOXX [Suspect]
     Route: 048
     Dates: start: 20030714, end: 20030731
  3. BUDESONIDE AND FORMOTEROL FUMARATE [Concomitant]
     Route: 055
  4. TIOTROPIUM BROMIDE [Concomitant]
     Route: 055
  5. PROSCAR [Concomitant]
     Route: 048

REACTIONS (6)
  - CARDIAC FAILURE [None]
  - CORONARY ARTERY STENOSIS [None]
  - DILATATION VENTRICULAR [None]
  - HIGH DENSITY LIPOPROTEIN INCREASED [None]
  - MYOCARDIAL INFARCTION [None]
  - PULMONARY BULLA [None]
